FAERS Safety Report 4951896-6 (Version None)
Quarter: 2006Q1

REPORT INFORMATION
  Report Type: 
  Country: None (occurrence: None)
  Receive Date: 20060320
  Receipt Date: 20060306
  Transmission Date: 20060701
  Serious: Yes (Disabling, Other)
  Sender: FDA-Public Use
  Company Number: 2006032828

PATIENT
  Age: 77 Year
  Sex: Male

DRUGS (5)
  1. GABAPENTIN [Suspect]
     Indication: NEURALGIA
     Dosage: 300 MG, ORAL
     Route: 048
     Dates: start: 20060214, end: 20060216
  2. SENNA            (SENNA) [Concomitant]
  3. ATENOLOL [Concomitant]
  4. CO-AMILOZIDE          (AMILORIDE HYDROCHLORIDE, HYDROCHLOROTHIAZIDE) [Concomitant]
  5. MILK OF MAGNESIA TAB [Concomitant]

REACTIONS (2)
  - MUSCLE RIGIDITY [None]
  - TREMOR [None]
